FAERS Safety Report 5170528-8 (Version None)
Quarter: 2006Q4

REPORT INFORMATION
  Report Type: 
  Country: None (occurrence: None)
  Receive Date: 20061204
  Receipt Date: 20061124
  Transmission Date: 20070319
  Serious: Yes (Disabling)
  Sender: FDA-Public Use
  Company Number: PHFR2006GB03390

PATIENT
  Age: 72 Year
  Sex: Male

DRUGS (4)
  1. TIMOLOL MALEATE [Suspect]
     Indication: KERATITIS HERPETIC
     Dosage: 1 DROP
     Dates: start: 20040601
  2. PREDNISOLONE [Suspect]
     Indication: KERATITIS HERPETIC
     Dosage: 1 DROP, TWO TIMES A DAY
     Dates: start: 20040601
  3. ACYCLOVIR [Concomitant]
  4. DIAMOX (ACETOZOLAMIDE) [Concomitant]

REACTIONS (2)
  - BLINDNESS [None]
  - CORNEAL DEPOSITS [None]
